FAERS Safety Report 7861066 (Version 2)
Quarter: 2015Q2

REPORT INFORMATION
  Report Type: Report from Study
  Country: IT (occurrence: IT)
  Receive Date: 20110317
  Receipt Date: 20150428
  Transmission Date: 20150821
  Serious: Yes (Hospitalization, Disabling, Other)
  Sender: FDA-Public Use
  Company Number: IT-ACTELION-A-CH2006-12757

PATIENT
  Age: 12 Year
  Sex: Female
  Weight: 41 kg

DRUGS (2)
  1. ZAVESCA [Suspect]
     Active Substance: MIGLUSTAT
     Dosage: 33 MG, TID
     Route: 048
     Dates: start: 20050622, end: 20051019
  2. ZAVESCA [Suspect]
     Active Substance: MIGLUSTAT
     Indication: NIEMANN-PICK DISEASE
     Dosage: 100 MG, TID
     Route: 048
     Dates: start: 20051020

REACTIONS (6)
  - Seizure [Recovered/Resolved]
  - Tremor [Not Recovered/Not Resolved]
  - Epilepsy [Recovered/Resolved]
  - Dysphagia [Recovered/Resolved with Sequelae]
  - Gastrostomy [Recovered/Resolved with Sequelae]
  - Neurological decompensation [Unknown]

NARRATIVE: CASE EVENT DATE: 20050809
